FAERS Safety Report 6172408-8 (Version None)
Quarter: 2009Q2

REPORT INFORMATION
  Report Type: 
  Country: None (occurrence: None)
  Receive Date: 20090429
  Receipt Date: 20090427
  Transmission Date: 20091009
  Serious: Yes (Death)
  Sender: FDA-Public Use
  Company Number: US-EISAI INC.-E2020-04505-SPO-US

PATIENT
  Age: 81 Year
  Sex: Female

DRUGS (5)
  1. ARICEPT [Suspect]
     Route: 048
     Dates: start: 20090101, end: 20090330
  2. ARICEPT [Suspect]
     Route: 048
     Dates: start: 20090331, end: 20090405
  3. ARICEPT [Suspect]
     Route: 048
     Dates: start: 20090406, end: 20090413
  4. NORVASC [Concomitant]
  5. METOPROLOL SUCCINATE [Concomitant]

REACTIONS (8)
  - ASTHENIA [None]
  - CARDIAC ARREST [None]
  - DECREASED APPETITE [None]
  - DYSPNOEA [None]
  - FATIGUE [None]
  - HYPERSOMNIA [None]
  - RESPIRATORY ARREST [None]
  - RESPIRATORY FAILURE [None]
